FAERS Safety Report 15346387 (Version 1)
Quarter: 2018Q3

REPORT INFORMATION
  Report Type: Spontaneous
  Country: DE (occurrence: DE)
  Receive Date: 20180904
  Receipt Date: 20180904
  Transmission Date: 20181010
  Serious: Yes (Other)
  Sender: FDA-Public Use
  Company Number: DE-AUROBINDO-AUR-APL-2018-043308

PATIENT
  Age: 39 Year
  Sex: Female

DRUGS (3)
  1. MIRTAZAPINE AUROBINDO FILMCOATED TABLETS 15MG [Suspect]
     Active Substance: MIRTAZAPINE
     Dosage: HALF TABLET PER DAY
     Route: 048
  2. MIRTAZAPINE AUROBINDO FILMCOATED TABLETS 15MG [Suspect]
     Active Substance: MIRTAZAPINE
     Dosage: A QUARTER TABLET
     Route: 048
     Dates: start: 201805
  3. MIRTAZAPINE AUROBINDO FILMCOATED TABLETS 15MG [Suspect]
     Active Substance: MIRTAZAPINE
     Indication: POST-TRAUMATIC STRESS DISORDER
     Dosage: 1 TABLET PER DAY
     Route: 048

REACTIONS (4)
  - Dry mouth [Not Recovered/Not Resolved]
  - Dry eye [Not Recovered/Not Resolved]
  - Suicidal ideation [Recovering/Resolving]
  - Weight increased [Not Recovered/Not Resolved]

NARRATIVE: CASE EVENT DATE: 201805
